FAERS Safety Report 10431069 (Version 1)
Quarter: 2014Q1

REPORT INFORMATION
  Report Type: Spontaneous
  Country: US (occurrence: None)
  Receive Date: 20130507
  Receipt Date: 20130507
  Transmission Date: 20141002
  Serious: No
  Sender: FDA-Public Use
  Company Number: PHEH2013US004033

PATIENT
  Age: 59 Year
  Sex: Female
  Weight: 72.6 kg

DRUGS (11)
  1. AFINITOR (RAD) UNKNOWN [Suspect]
     Indication: BREAST CANCER STAGE IV
  2. TYLENOL (PARACETAMOL) [Concomitant]
  3. ARMOUR THYROID (THYROID) [Concomitant]
  4. ALLEGRA (FEXOFENADINE HYDROCHLORIDE) [Concomitant]
  5. CALCIUM [Concomitant]
  6. SINGULAIR (MONTELUKAST SODIUM) TABLET [Concomitant]
  7. COLACE (DOCUSATE SODIUM) [Concomitant]
  8. ONDANSETRON [Concomitant]
  9. MIRALAX (MACROGOL) [Concomitant]
  10. OMEPRAZOLE [Concomitant]
  11. EXEMESTANE [Concomitant]

REACTIONS (7)
  - Nasal congestion [None]
  - Epistaxis [None]
  - Nasal discomfort [None]
  - Headache [None]
  - Nail disorder [None]
  - Stomatitis [None]
  - Bone pain [None]
